FAERS Safety Report 14683784 (Version 2)
Quarter: 2018Q2

REPORT INFORMATION
  Report Type: Spontaneous
  Country: US (occurrence: US)
  Receive Date: 20180327
  Receipt Date: 20180405
  Transmission Date: 20180711
  Serious: Yes (Other)
  Sender: FDA-Public Use
  Company Number: US-AMGEN-USASP2018038775

PATIENT
  Age: 74 Year
  Sex: Male

DRUGS (3)
  1. XGEVA [Suspect]
     Active Substance: DENOSUMAB
     Dosage: UNK, QMO
     Route: 065
  2. IRON [Concomitant]
     Active Substance: IRON
  3. XGEVA [Suspect]
     Active Substance: DENOSUMAB
     Indication: PROPHYLAXIS
     Dosage: UNK (3 TO 6 MONTHS)
     Route: 065
     Dates: start: 2015

REACTIONS (3)
  - Myelofibrosis [Not Recovered/Not Resolved]
  - Inappropriate schedule of drug administration [Unknown]
  - White blood cell count increased [Unknown]
